FAERS Safety Report 9311891 (Version 1)
Quarter: 2013Q2

REPORT INFORMATION
  Report Type: Report from Study
  Country: US (occurrence: US)
  Receive Date: 20130528
  Receipt Date: 20130528
  Transmission Date: 20140414
  Serious: Yes (Other)
  Sender: FDA-Public Use
  Company Number: US-JNJFOC-20130511268

PATIENT
  Sex: 0

DRUGS (1)
  1. REMICADE [Suspect]
     Indication: RHEUMATOID ARTHRITIS
     Route: 042

REACTIONS (6)
  - Carpal tunnel syndrome [Unknown]
  - Immune system disorder [Unknown]
  - Candida infection [Recovered/Resolved]
  - Pain [Recovering/Resolving]
  - Nasopharyngitis [Unknown]
  - Infection [Unknown]
